FAERS Safety Report 7953924-2 (Version None)
Quarter: 2011Q4

REPORT INFORMATION
  Report Type: 
  Country: None (occurrence: None)
  Receive Date: 20111129
  Receipt Date: 20111114
  Transmission Date: 20120403
  Serious: Yes (Hospitalization)
  Sender: FDA-Public Use
  Company Number: WAES 1111USA01733

PATIENT
  Age: 82 Year
  Sex: Male

DRUGS (10)
  1. METOPROLOL [Concomitant]
  2. BORTEZOMIB [Suspect]
     Indication: MULTIPLE MYELOMA
     Dates: start: 20110614, end: 20110624
  3. BORTEZOMIB [Suspect]
     Indication: MULTIPLE MYELOMA
     Dates: start: 20110705, end: 20110715
  4. DECADRON [Suspect]
     Indication: MULTIPLE MYELOMA
     Dosage: //PO
     Route: 048
     Dates: start: 20110614
  5. STUDY DRUG (UNSPECIFIED) [Suspect]
     Indication: MULTIPLE MYELOMA
     Dosage: 100 MG/ /IV
     Route: 042
     Dates: start: 20110614, end: 20110715
  6. PAMIDRONATE DISODIUM [Concomitant]
  7. POTASSIUM CHLORIDE [Concomitant]
  8. OMEPRAZOLE [Concomitant]
  9. LOMOTIL [Concomitant]
  10. SIMVASTATIN [Concomitant]

REACTIONS (26)
  - BLOOD CALCIUM DECREASED [None]
  - FALL [None]
  - HYPOVOLAEMIA [None]
  - BLOOD SODIUM DECREASED [None]
  - CONFUSIONAL STATE [None]
  - NEUROPATHY PERIPHERAL [None]
  - PAIN OF SKIN [None]
  - ABDOMINAL DISTENSION [None]
  - BLOOD UREA INCREASED [None]
  - DEHYDRATION [None]
  - GASTROINTESTINAL SOUNDS ABNORMAL [None]
  - FLATULENCE [None]
  - DIARRHOEA [None]
  - BLOOD GLUCOSE INCREASED [None]
  - TACHYCARDIA [None]
  - ECCHYMOSIS [None]
  - RED BLOOD CELL SCHISTOCYTES PRESENT [None]
  - LOSS OF CONSCIOUSNESS [None]
  - NAUSEA [None]
  - VOMITING [None]
  - SYNCOPE [None]
  - ELLIPTOCYTOSIS [None]
  - MULTIPLE MYELOMA [None]
  - NEOPLASM PROGRESSION [None]
  - DIZZINESS [None]
  - ASTHENIA [None]
